FAERS Safety Report 21624351 (Version 1)
Quarter: 2022Q4

REPORT INFORMATION
  Report Type: Spontaneous
  Country: US (occurrence: US)
  Receive Date: 20221121
  Receipt Date: 20221121
  Transmission Date: 20230113
  Serious: Yes (Other)
  Sender: FDA-Public Use
  Company Number: US-BRACCO-2022US00829

PATIENT
  Age: 57 Year
  Sex: Female

DRUGS (6)
  1. LUMASON [Suspect]
     Active Substance: SULFUR HEXAFLUORIDE
     Indication: Diagnostic procedure
     Dosage: 2 ML, SINGLE
     Route: 042
     Dates: start: 20220304, end: 20220304
  2. LUMASON [Suspect]
     Active Substance: SULFUR HEXAFLUORIDE
     Indication: Diagnostic procedure
     Dosage: 2 ML, SINGLE
     Route: 042
     Dates: start: 20220304, end: 20220304
  3. LUMASON [Suspect]
     Active Substance: SULFUR HEXAFLUORIDE
     Indication: Diagnostic procedure
     Dosage: 2 ML, SINGLE
     Route: 042
     Dates: start: 20220304, end: 20220304
  4. METOPROLOL [Concomitant]
     Active Substance: METOPROLOL
     Dosage: 100 MG
  5. LIPITOR [Concomitant]
     Active Substance: ATORVASTATIN CALCIUM
     Dosage: 10 MG
  6. NORVASC [Concomitant]
     Active Substance: AMLODIPINE BESYLATE
     Dosage: 2.5 MG

REACTIONS (15)
  - Respiratory arrest [Recovered/Resolved]
  - Blood pressure immeasurable [Recovered/Resolved]
  - Loss of consciousness [Recovered/Resolved]
  - Tachycardia [Recovered/Resolved]
  - Hyperhidrosis [Recovered/Resolved]
  - Oral discomfort [Recovered/Resolved]
  - Flushing [Recovered/Resolved]
  - Throat irritation [Recovered/Resolved]
  - Dyspnoea [Recovered/Resolved]
  - Nausea [Recovered/Resolved]
  - Retching [Recovered/Resolved]
  - Vomiting [Recovered/Resolved]
  - Blood pressure decreased [Recovered/Resolved]
  - Dizziness [Recovered/Resolved]
  - Confusional state [Recovered/Resolved]

NARRATIVE: CASE EVENT DATE: 20220304
